FAERS Safety Report 15995500 (Version 1)
Quarter: 2019Q1

REPORT INFORMATION
  Report Type: Report from Study
  Country: CZ (occurrence: CZ)
  Receive Date: 20190222
  Receipt Date: 20190222
  Transmission Date: 20190418
  Serious: Yes (Hospitalization)
  Sender: FDA-Public Use
  Company Number: CZ-BAYER-2019-032427

PATIENT
  Age: 20 Year
  Sex: Female

DRUGS (1)
  1. JAYDESS [Suspect]
     Active Substance: LEVONORGESTREL
     Indication: CONTRACEPTION
     Dosage: 14 MCG/24HR, CONT
     Route: 015
     Dates: start: 20170719, end: 20171019

REACTIONS (6)
  - Ovarian cyst [Recovered/Resolved]
  - Pelvic adhesions [Recovered/Resolved]
  - Abdominal tenderness [Recovered/Resolved]
  - Salpingitis [Recovered/Resolved]
  - Abdominal pain lower [Recovered/Resolved]
  - Oophoritis [Recovered/Resolved]

NARRATIVE: CASE EVENT DATE: 201710
